FAERS Safety Report 5487300-1 (Version None)
Quarter: 2007Q4

REPORT INFORMATION
  Report Type: 
  Country: None (occurrence: None)
  Receive Date: 20071016
  Receipt Date: 20071010
  Transmission Date: 20080405
  Serious: Yes (Other)
  Sender: FDA-Public Use
  Company Number: AU-MERCK-0710AUS00071

PATIENT
  Age: 64 Year
  Sex: Female

DRUGS (3)
  1. FOSAMAX [Suspect]
     Route: 048
  2. PHENYTOIN [Suspect]
     Route: 065
  3. LAMOTRIGINE [Suspect]
     Route: 065

REACTIONS (4)
  - CONVULSION [None]
  - DELIRIUM [None]
  - DRUG INTERACTION [None]
  - HEADACHE [None]
